FAERS Safety Report 7030173-6 (Version None)
Quarter: 2010Q4

REPORT INFORMATION
  Report Type: 
  Country: None (occurrence: None)
  Receive Date: 20101006
  Receipt Date: 20100923
  Transmission Date: 20110411
  Serious: Yes (Hospitalization, Other)
  Sender: FDA-Public Use
  Company Number: US-ELI_LILLY_AND_COMPANY-US201006006379

PATIENT
  Sex: Female

DRUGS (14)
  1. FORTEO [Suspect]
     Indication: OSTEOPOROSIS
     Dosage: 20 UG, DAILY (1/D)
  2. ANTIHYPERTENSIVES [Concomitant]
  3. DIURETICS [Concomitant]
  4. VITAMIN TAB [Concomitant]
  5. FISH OIL [Concomitant]
  6. CALCIUM [Concomitant]
  7. VITAMIN D [Concomitant]
  8. MINERALS NOS [Concomitant]
  9. ASPIRIN [Concomitant]
  10. REMERON [Concomitant]
  11. CALCIUM MAGNESIUM [Concomitant]
     Dosage: UNK, DAILY (1/D)
  12. TRIAMTERENE AND HYDROCHLOROTHIAZIDE [Concomitant]
     Indication: OEDEMA PERIPHERAL
     Dosage: UNK, DAILY (1/D)
  13. METOPROLOL [Concomitant]
     Indication: HYPERTENSION
     Dosage: 25 MG, DAILY (1/D)
  14. PREMARIN [Concomitant]
     Dosage: 0.3 MG, DAILY (1/D)

REACTIONS (14)
  - BALANCE DISORDER [None]
  - BLOOD CALCIUM INCREASED [None]
  - DIZZINESS [None]
  - EAR INFECTION [None]
  - EAR PAIN [None]
  - FALL [None]
  - HEADACHE [None]
  - HYPOACUSIS [None]
  - INSOMNIA [None]
  - NERVOUSNESS [None]
  - OTITIS MEDIA ACUTE [None]
  - SPINAL FRACTURE [None]
  - TINNITUS [None]
  - UPPER LIMB FRACTURE [None]
